FAERS Safety Report 6600648-X (Version None)
Quarter: 2010Q1

REPORT INFORMATION
  Report Type: 
  Country: None (occurrence: None)
  Receive Date: 20100224
  Receipt Date: 20100212
  Transmission Date: 20100710
  Serious: Yes (Hospitalization)
  Sender: FDA-Public Use
  Company Number: US-JNJFOC-20100100359

PATIENT
  Age: 81 Year
  Sex: Female
  Weight: 96.16 kg

DRUGS (5)
  1. TYLENOL [Suspect]
     Route: 048
  2. TYLENOL [Suspect]
     Indication: ARTHRITIS
     Dosage: 650-1300 MG TWICE A DAY FOR MONTHS
     Route: 048
  3. ANTI-HYPERTENSIVE [Concomitant]
  4. DIABETES MEDICATION [Concomitant]
  5. ^ARTHRITIS MEDICINE^ [Concomitant]

REACTIONS (4)
  - ABDOMINAL PAIN [None]
  - NAUSEA [None]
  - PRODUCT QUALITY ISSUE [None]
  - VOMITING [None]
